FAERS Safety Report 9407290 (Version 1)
Quarter: 2013Q3

REPORT INFORMATION
  Report Type: Spontaneous
  Country: FR (occurrence: FR)
  Receive Date: 20130718
  Receipt Date: 20130718
  Transmission Date: 20140515
  Serious: Yes (Other)
  Sender: FDA-Public Use
  Company Number: FR-PFIZER INC-2013206945

PATIENT
  Age: 62 Year
  Sex: Male

DRUGS (3)
  1. NEURONTIN [Suspect]
     Dosage: UNK
     Route: 048
     Dates: start: 20130622, end: 20130624
  2. VANCOMYCIN HCL [Suspect]
     Indication: STAPHYLOCOCCAL BACTERAEMIA
     Dosage: UNK
     Route: 042
     Dates: start: 20130614, end: 20130624
  3. OFLOCET [Suspect]
     Indication: BACTERAEMIA
     Dosage: UNK
     Route: 048
     Dates: start: 20130619, end: 20130624

REACTIONS (1)
  - Vascular purpura [Not Recovered/Not Resolved]
